FAERS Safety Report 21157268 (Version 1)
Quarter: 2022Q3

REPORT INFORMATION
  Report Type: Spontaneous
  Country: US (occurrence: None)
  Receive Date: 20220801
  Receipt Date: 20220801
  Transmission Date: 20221027
  Serious: No
  Sender: FDA-Public Use
  Company Number: None

PATIENT
  Age: 57 Year
  Sex: Female

DRUGS (2)
  1. OPSUMIT [Suspect]
     Active Substance: MACITENTAN
     Indication: Pulmonary arterial hypertension
     Dosage: 10MG DAILY BY MOUTH?
     Route: 048
     Dates: start: 20210120
  2. SILDENAFIL [Concomitant]

REACTIONS (1)
  - Catheter site related reaction [None]

NARRATIVE: CASE EVENT DATE: 20220729
